FAERS Safety Report 5719966-2 (Version None)
Quarter: 2008Q2

REPORT INFORMATION
  Report Type: 
  Country: None (occurrence: None)
  Receive Date: 20080428
  Receipt Date: 20070405
  Transmission Date: 20081010
  Serious: No
  Sender: FDA-Public Use
  Company Number: US-AMGEN-US218377

PATIENT
  Sex: Female

DRUGS (13)
  1. SENSIPAR [Suspect]
     Indication: DRUG USE FOR UNKNOWN INDICATION
     Route: 065
     Dates: start: 20040101, end: 20070308
  2. SENSIPAR [Suspect]
     Route: 065
     Dates: start: 20070308
  3. VYTORIN [Concomitant]
     Route: 048
  4. TRICOR [Concomitant]
     Route: 048
  5. BENICAR [Concomitant]
     Route: 048
  6. LEXAPRO [Concomitant]
     Route: 048
  7. ACTONEL [Concomitant]
     Route: 048
  8. COUMADIN [Concomitant]
     Route: 048
  9. NORVASC [Concomitant]
     Route: 048
  10. DILTIAZEM [Concomitant]
     Route: 048
  11. VITAMIN D [Concomitant]
     Route: 065
  12. NOVOLOG [Concomitant]
     Route: 065
  13. INSULIN INSULATARD NPH NORDISK [Concomitant]
     Route: 058

REACTIONS (5)
  - CARPAL TUNNEL SYNDROME [None]
  - HYPOAESTHESIA [None]
  - PAIN [None]
  - PARAESTHESIA [None]
  - PRURITUS [None]
